FAERS Safety Report 11863031 (Version 1)
Quarter: 2015Q4

REPORT INFORMATION
  Report Type: Report from Study
  Country: BR (occurrence: BR)
  Receive Date: 20151223
  Receipt Date: 20151223
  Transmission Date: 20160305
  Serious: Yes (Other)
  Sender: FDA-Public Use
  Company Number: BR-ROCHE-1682519

PATIENT
  Sex: Male
  Weight: 61 kg

DRUGS (1)
  1. AVASTIN [Suspect]
     Active Substance: BEVACIZUMAB
     Indication: COLORECTAL CANCER
     Route: 065
     Dates: start: 201509

REACTIONS (7)
  - Weight decreased [Unknown]
  - Fatigue [Recovering/Resolving]
  - Bedridden [Recovering/Resolving]
  - Nervousness [Recovering/Resolving]
  - Depressed mood [Recovering/Resolving]
  - Decreased appetite [Not Recovered/Not Resolved]
  - Asthenia [Recovering/Resolving]
